FAERS Safety Report 5920430-6 (Version None)
Quarter: 2008Q4

REPORT INFORMATION
  Report Type: 
  Country: None (occurrence: None)
  Receive Date: 20081016
  Receipt Date: 20081006
  Transmission Date: 20090506
  Serious: Yes (Other)
  Sender: FDA-Public Use
  Company Number: FR-ELI_LILLY_AND_COMPANY-FR200808002668

PATIENT
  Age: 79 Year
  Sex: Male

DRUGS (7)
  1. FORTEO [Suspect]
     Indication: OSTEOPOROSIS
     Dosage: 20 UG, DAILY (1/D)
     Route: 058
     Dates: start: 20080616, end: 20080731
  2. TRIATEC [Concomitant]
     Dosage: UNK, UNKNOWN
     Route: 065
  3. SECTRAL [Concomitant]
     Dosage: UNK, UNKNOWN
     Route: 065
  4. TAHOR [Concomitant]
     Dosage: UNK, UNKNOWN
     Route: 065
  5. KARDEGIC [Concomitant]
     Dosage: UNK, UNKNOWN
     Route: 065
  6. CACIT [Concomitant]
     Dosage: UNK, UNKNOWN
     Route: 065
  7. CHEMOTHERAPEUTICS NOS [Concomitant]
     Indication: MULTIPLE MYELOMA
     Dosage: UNK, UNKNOWN
     Route: 065

REACTIONS (1)
  - MULTIPLE MYELOMA [None]
